FAERS Safety Report 11679299 (Version 3)
Quarter: 2015Q4

REPORT INFORMATION
  Report Type: Spontaneous
  Country: US (occurrence: US)
  Receive Date: 20151027
  Receipt Date: 20151110
  Transmission Date: 20160304
  Serious: No
  Sender: FDA-Public Use
  Company Number: US-ELI_LILLY_AND_COMPANY-US201008004486

PATIENT
  Age: 63 Year
  Sex: Female

DRUGS (5)
  1. FORTEO [Suspect]
     Active Substance: TERIPARATIDE
     Dosage: 20 UG, QD
     Route: 065
  2. FORTEO [Suspect]
     Active Substance: TERIPARATIDE
     Indication: OSTEOPOROSIS
     Dosage: 20 UG, QD
     Dates: start: 201008
  3. FORTEO [Suspect]
     Active Substance: TERIPARATIDE
     Dosage: 20 UG, QD
     Route: 065
  4. FORTEO [Suspect]
     Active Substance: TERIPARATIDE
     Dosage: 20 UG, QD
  5. FORTEO [Suspect]
     Active Substance: TERIPARATIDE
     Dosage: 20 UG, QD

REACTIONS (9)
  - Hot flush [Not Recovered/Not Resolved]
  - Impaired healing [Unknown]
  - Dyspnoea [Recovering/Resolving]
  - Road traffic accident [Recovering/Resolving]
  - Injection site pain [Not Recovered/Not Resolved]
  - Grunting [Recovered/Resolved]
  - Pain [Recovering/Resolving]
  - Sternal fracture [Recovering/Resolving]
  - Hyperhidrosis [Unknown]

NARRATIVE: CASE EVENT DATE: 201107
